FAERS Safety Report 6723683-X (Version None)
Quarter: 2010Q2

REPORT INFORMATION
  Report Type: 
  Country: None (occurrence: None)
  Receive Date: 20100513
  Receipt Date: 20100504
  Transmission Date: 20101027
  Serious: Yes (Other)
  Sender: FDA-Public Use
  Company Number: US-JNJFOC-20100307473

PATIENT
  Age: 50 Year
  Sex: Male

DRUGS (2)
  1. NUCYNTA [Suspect]
     Indication: PAIN IN EXTREMITY
     Dosage: 3 PER DAY
     Route: 048
  2. NUCYNTA [Suspect]
     Indication: BACK PAIN
     Dosage: 3 PER DAY
     Route: 048

REACTIONS (2)
  - DYSKINESIA [None]
  - TREMOR [None]
